FAERS Safety Report 6729815-1 (Version None)
Quarter: 2010Q2

REPORT INFORMATION
  Report Type: 
  Country: None (occurrence: None)
  Receive Date: 20100518
  Receipt Date: 20100506
  Transmission Date: 20101027
  Serious: Yes (Other)
  Sender: FDA-Public Use
  Company Number: JP-PFIZER INC-2010015875

PATIENT
  Age: 9 Year
  Sex: Female
  Weight: 21.315 kg

DRUGS (2)
  1. SOMATROPIN [Suspect]
     Indication: SMALL FOR DATES BABY
     Dosage: 0.6 MG, 1X/DAY, 4.2 MG/7 TIMES/WEEK
     Route: 058
     Dates: start: 20081224
  2. SOMATROPIN [Suspect]
     Dosage: 0.8 MG, 1X/DAY, 5.6 MG/7 TIMES/WEEK
     Route: 058
     Dates: start: 20090819

REACTIONS (1)
  - SLEEP APNOEA SYNDROME [None]
